FAERS Safety Report 4994882-2 (Version None)
Quarter: 2006Q2

REPORT INFORMATION
  Report Type: 
  Country: None (occurrence: None)
  Receive Date: 20060503
  Receipt Date: 20060419
  Transmission Date: 20061013
  Serious: Yes (Other)
  Sender: FDA-Public Use
  Company Number: US200604003805

PATIENT
  Sex: Male

DRUGS (1)
  1. ZYPREXA [Suspect]
     Indication: BIPOLAR DISORDER
     Dosage: 5 MG, 2/D

REACTIONS (5)
  - DYSPNOEA [None]
  - HEPATITIS C [None]
  - OEDEMA [None]
  - PRESCRIBED OVERDOSE [None]
  - WEIGHT INCREASED [None]
